FAERS Safety Report 5287454-6 (Version None)
Quarter: 2007Q1

REPORT INFORMATION
  Report Type: 
  Country: None (occurrence: None)
  Receive Date: 20070116
  Receipt Date: 20060920
  Transmission Date: 20070707
  Serious: No
  Sender: FDA-Public Use
  Company Number: 2006SP003370

PATIENT
  Age: 73 Year
  Sex: Male
  Weight: 93.441 kg

DRUGS (13)
  1. LUNESTA [Suspect]
     Indication: INSOMNIA
     Dosage: 3 MG HS ORAL
     Route: 048
     Dates: start: 20060701
  2. AMBIEN [Concomitant]
  3. ALLOPURINOL [Concomitant]
  4. ADVAIR DISKUS 100/50 [Concomitant]
  5. COZAAR [Concomitant]
  6. TAMSULOSIN HCL [Concomitant]
  7. COUGH SYRUP [Concomitant]
  8. LEXAPRO [Concomitant]
  9. METFORMIN HCL [Concomitant]
  10. PROSCAR [Concomitant]
  11. RHINOCORT [Concomitant]
  12. SINGULAIR [Concomitant]
  13. OXYGEN [Concomitant]

REACTIONS (1)
  - INSOMNIA [None]
